FAERS Safety Report 7610994-9 (Version None)
Quarter: 2011Q3

REPORT INFORMATION
  Report Type: 
  Country: None (occurrence: None)
  Receive Date: 20110715
  Receipt Date: 20110707
  Transmission Date: 20111222
  Serious: Yes (Other)
  Sender: FDA-Public Use
  Company Number: NL-ABBOTT-11P-114-0836716-00

PATIENT
  Age: 57 Year
  Sex: Male

DRUGS (1)
  1. LOPINAVIR/RITONAVIR [Suspect]
     Indication: HIV INFECTION
     Dosage: 50/200 TWICE DAILY
     Dates: start: 20010101

REACTIONS (5)
  - DYSARTHRIA [None]
  - DYSPHAGIA [None]
  - DYSKINESIA [None]
  - DRUG RESISTANCE [None]
  - TREMOR [None]
